FAERS Safety Report 8433546-X (Version None)
Quarter: 2012Q2

REPORT INFORMATION
  Report Type: 
  Country: None (occurrence: None)
  Receive Date: 20120613
  Receipt Date: 20120604
  Transmission Date: 20120825
  Serious: Yes (Death, Hospitalization, Other)
  Sender: FDA-Public Use
  Company Number: US-BRISTOL-MYERS SQUIBB COMPANY-15852007

PATIENT
  Age: 67 Year
  Sex: Female
  Weight: 90 kg

DRUGS (2)
  1. YERVOY [Suspect]
     Indication: MALIGNANT MELANOMA
     Dosage: 250 MG VIALS
     Dates: start: 20110527
  2. MORPHINE SULFATE [Concomitant]
     Indication: PAIN
     Dosage: TABS
     Route: 048
     Dates: start: 20110523, end: 20110620

REACTIONS (4)
  - DIARRHOEA [None]
  - NEOPLASM MALIGNANT [None]
  - ACUTE MYOCARDIAL INFARCTION [None]
  - CARDIAC FAILURE CONGESTIVE [None]
